FAERS Safety Report 15365728 (Version 1)
Quarter: 2018Q3

REPORT INFORMATION
  Report Type: Spontaneous
  Country: US (occurrence: US)
  Receive Date: 20180910
  Receipt Date: 20180910
  Transmission Date: 20181010
  Serious: Yes (Death, Hospitalization, Other)
  Sender: FDA-Public Use
  Company Number: US-ENDO PHARMACEUTICALS INC-2018-041028

PATIENT
  Age: 47 Year
  Sex: Female

DRUGS (5)
  1. ZIPRASIDONE. [Suspect]
     Active Substance: ZIPRASIDONE
     Indication: ANXIETY
     Dosage: UNK UNKNOWN, UNKNOWN
     Route: 065
  2. HEROIN [Suspect]
     Active Substance: DIAMORPHINE
     Indication: PRODUCT USED FOR UNKNOWN INDICATION
     Dosage: UNK UNKNOWN, UNKNOWN
     Route: 065
  3. PERCOCET [Suspect]
     Active Substance: ACETAMINOPHEN\OXYCODONE HYDROCHLORIDE
     Indication: PRODUCT USED FOR UNKNOWN INDICATION
     Dosage: UNK UNKNOWN, UNKNOWN
     Route: 065
  4. TRAZODONE HYDROCHLORIDE TABLETS [Suspect]
     Active Substance: TRAZODONE HYDROCHLORIDE
     Indication: PRODUCT USED FOR UNKNOWN INDICATION
     Dosage: UNK UNKNOWN, UNKNOWN
     Route: 065
  5. OXYCODONE HYDROCHLORIDE. [Suspect]
     Active Substance: OXYCODONE HYDROCHLORIDE
     Indication: PRODUCT USED FOR UNKNOWN INDICATION
     Dosage: UNK UNKNOWN, UNKNOWN
     Route: 065

REACTIONS (16)
  - Migraine [Recovered/Resolved]
  - Generalised anxiety disorder [Unknown]
  - Toxicity to various agents [Fatal]
  - Post lumbar puncture syndrome [Recovered/Resolved]
  - Bipolar II disorder [Unknown]
  - Energy increased [Unknown]
  - Oedema [Unknown]
  - Tenderness [Unknown]
  - Pain [Unknown]
  - Sleep disorder [Not Recovered/Not Resolved]
  - Abdominal pain [Unknown]
  - Negative thoughts [Unknown]
  - Obesity [Unknown]
  - Stress [Unknown]
  - Erythema [Unknown]
  - Abscess [Unknown]

NARRATIVE: CASE EVENT DATE: 2015
